FAERS Safety Report 8048619-3 (Version None)
Quarter: 2011Q4

REPORT INFORMATION
  Report Type: 
  Country: None (occurrence: None)
  Receive Date: 20111230
  Receipt Date: 20111212
  Transmission Date: 20120403
  Serious: Yes (Hospitalization, Other)
  Sender: FDA-Public Use
  Company Number: 2010BH003732

PATIENT
  Age: 37 Year
  Sex: Male
  Weight: 79.8331 kg

DRUGS (58)
  1. MINOXIDIL [Concomitant]
  2. LEVAQUIN [Concomitant]
  3. FUROSEMDIE [Concomitant]
  4. IRON [Concomitant]
  5. AMBIEN [Concomitant]
  6. HEPARIN SODIUM INJECTION [Suspect]
  7. HEPARIN SODIUM INJECTION [Suspect]
     Dosage: 5000 UNITS;2X A DAY;SC ; 5000 UNITS;EVERY 8 HR;SC
     Route: 058
     Dates: start: 20080201, end: 20080225
  8. HEPARIN SODIUM INJECTION [Suspect]
     Dosage: 5000 UNITS;2X A DAY;SC ; 5000 UNITS;EVERY 8 HR;SC
     Route: 058
     Dates: start: 20090320, end: 20090324
  9. RENA-VITE [Concomitant]
  10. SENSIPAR [Concomitant]
  11. HEPARIN SODIUM INJECTION [Suspect]
     Dosage: IP ; 1 ML;IP ;IP
     Dates: start: 20071001, end: 20080201
  12. HEPARIN SODIUM INJECTION [Suspect]
     Dosage: IP ; 1 ML;IP ;IP
     Dates: start: 20071206, end: 20080101
  13. HEPARIN SODIUM INJECTION [Suspect]
     Dosage: IP ; 1 ML;IP ;IP
     Dates: start: 20071215, end: 20080601
  14. REGLAN [Concomitant]
  15. CELEBREX [Concomitant]
  16. LABETALOL HCL [Concomitant]
  17. IMMUNE GLOBULIN INTRAVENOUS (HUMAN) [Suspect]
     Indication: OFF LABEL USE
     Dosage: IV
     Route: 042
     Dates: start: 20071201, end: 20080101
  18. IMMUNE GLOBULIN INTRAVENOUS (HUMAN) [Suspect]
     Indication: DEMYELINATING POLYNEUROPATHY
     Dosage: IV
     Route: 042
     Dates: start: 20071201, end: 20080101
  19. HEPARIN SODIUM INJECTION [Suspect]
  20. CONTRAST MEDIA [Concomitant]
  21. DILAUDID [Concomitant]
  22. ALLOPURINOL [Concomitant]
  23. PRILOSEC [Concomitant]
  24. HEPARIN SODIUM INJECTION [Suspect]
  25. HEPARIN SODIUM INJECTION [Suspect]
     Dosage: 2000 UNITS;PRN;HEMO ; 3000 UNITS;PRN;HEMO
     Route: 010
     Dates: start: 20070501, end: 20070501
  26. HEPARIN SODIUM INJECTION [Suspect]
     Dosage: 2000 UNITS;PRN;HEMO ; 3000 UNITS;PRN;HEMO
     Route: 010
     Dates: start: 20080407, end: 20080505
  27. HEPARIN SODIUM INJECTION [Suspect]
     Dosage: 2000 UNITS;PRN;HEMO ; 3000 UNITS;PRN;HEMO
     Route: 010
     Dates: start: 20080407, end: 20080505
  28. FOSRENOL [Concomitant]
  29. HEPARIN SODIUM INJECTION [Suspect]
     Indication: HAEMODIALYSIS
     Dosage: SEE IMAGE
     Route: 042
     Dates: start: 20071001, end: 20080201
  30. HEPARIN SODIUM INJECTION [Suspect]
     Indication: INTRAVENOUS CATHETER MANAGEMENT
     Dosage: SEE IMAGE
     Route: 042
     Dates: start: 20071001, end: 20080201
  31. HEPARIN SODIUM INJECTION [Suspect]
     Indication: PERITONEAL DIALYSIS
     Dosage: SEE IMAGE
     Route: 042
     Dates: start: 20071001, end: 20080201
  32. HEPARIN SODIUM INJECTION [Suspect]
     Indication: THROMBOSIS PROPHYLAXIS
     Dosage: SEE IMAGE
     Route: 042
     Dates: start: 20071001, end: 20080201
  33. HEPARIN SODIUM INJECTION [Suspect]
     Indication: HAEMODIALYSIS
     Dosage: SEE IMAGE
     Route: 042
     Dates: start: 20090316, end: 20090316
  34. HEPARIN SODIUM INJECTION [Suspect]
     Indication: INTRAVENOUS CATHETER MANAGEMENT
     Dosage: SEE IMAGE
     Route: 042
     Dates: start: 20090316, end: 20090316
  35. HEPARIN SODIUM INJECTION [Suspect]
     Indication: PERITONEAL DIALYSIS
     Dosage: SEE IMAGE
     Route: 042
     Dates: start: 20090316, end: 20090316
  36. HEPARIN SODIUM INJECTION [Suspect]
     Indication: THROMBOSIS PROPHYLAXIS
     Dosage: SEE IMAGE
     Route: 042
     Dates: start: 20090316, end: 20090316
  37. HEPARIN SODIUM INJECTION [Suspect]
     Indication: HAEMODIALYSIS
     Dosage: SEE IMAGE
     Route: 042
     Dates: start: 20080229, end: 20080303
  38. HEPARIN SODIUM INJECTION [Suspect]
     Indication: INTRAVENOUS CATHETER MANAGEMENT
     Dosage: SEE IMAGE
     Route: 042
     Dates: start: 20080229, end: 20080303
  39. HEPARIN SODIUM INJECTION [Suspect]
     Indication: PERITONEAL DIALYSIS
     Dosage: SEE IMAGE
     Route: 042
     Dates: start: 20080229, end: 20080303
  40. HEPARIN SODIUM INJECTION [Suspect]
     Indication: THROMBOSIS PROPHYLAXIS
     Dosage: SEE IMAGE
     Route: 042
     Dates: start: 20080229, end: 20080303
  41. HEPARIN SODIUM INJECTION [Suspect]
     Indication: HAEMODIALYSIS
     Dosage: SEE IMAGE
     Route: 042
     Dates: start: 20080305, end: 20080311
  42. HEPARIN SODIUM INJECTION [Suspect]
     Indication: INTRAVENOUS CATHETER MANAGEMENT
     Dosage: SEE IMAGE
     Route: 042
     Dates: start: 20080305, end: 20080311
  43. HEPARIN SODIUM INJECTION [Suspect]
     Indication: PERITONEAL DIALYSIS
     Dosage: SEE IMAGE
     Route: 042
     Dates: start: 20080305, end: 20080311
  44. HEPARIN SODIUM INJECTION [Suspect]
     Indication: THROMBOSIS PROPHYLAXIS
     Dosage: SEE IMAGE
     Route: 042
     Dates: start: 20080305, end: 20080311
  45. HEPARIN SODIUM INJECTION [Suspect]
     Indication: HAEMODIALYSIS
     Dosage: SEE IMAGE
     Route: 042
     Dates: start: 20080225, end: 20080101
  46. HEPARIN SODIUM INJECTION [Suspect]
     Indication: INTRAVENOUS CATHETER MANAGEMENT
     Dosage: SEE IMAGE
     Route: 042
     Dates: start: 20080225, end: 20080101
  47. HEPARIN SODIUM INJECTION [Suspect]
     Indication: PERITONEAL DIALYSIS
     Dosage: SEE IMAGE
     Route: 042
     Dates: start: 20080225, end: 20080101
  48. HEPARIN SODIUM INJECTION [Suspect]
     Indication: THROMBOSIS PROPHYLAXIS
     Dosage: SEE IMAGE
     Route: 042
     Dates: start: 20080225, end: 20080101
  49. HEPARIN SODIUM INJECTION [Suspect]
     Indication: HAEMODIALYSIS
     Dosage: SEE IMAGE
     Route: 042
     Dates: start: 20080226, end: 20080226
  50. HEPARIN SODIUM INJECTION [Suspect]
     Indication: INTRAVENOUS CATHETER MANAGEMENT
     Dosage: SEE IMAGE
     Route: 042
     Dates: start: 20080226, end: 20080226
  51. HEPARIN SODIUM INJECTION [Suspect]
     Indication: PERITONEAL DIALYSIS
     Dosage: SEE IMAGE
     Route: 042
     Dates: start: 20080226, end: 20080226
  52. HEPARIN SODIUM INJECTION [Suspect]
     Indication: THROMBOSIS PROPHYLAXIS
     Dosage: SEE IMAGE
     Route: 042
     Dates: start: 20080226, end: 20080226
  53. HEPARIN SODIUM INJECTION [Suspect]
     Indication: HAEMODIALYSIS
     Dosage: SEE IMAGE
     Route: 042
     Dates: start: 20080226, end: 20080226
  54. HEPARIN SODIUM INJECTION [Suspect]
     Indication: INTRAVENOUS CATHETER MANAGEMENT
     Dosage: SEE IMAGE
     Route: 042
     Dates: start: 20080226, end: 20080226
  55. HEPARIN SODIUM INJECTION [Suspect]
     Indication: PERITONEAL DIALYSIS
     Dosage: SEE IMAGE
     Route: 042
     Dates: start: 20080226, end: 20080226
  56. HEPARIN SODIUM INJECTION [Suspect]
     Indication: THROMBOSIS PROPHYLAXIS
     Dosage: SEE IMAGE
     Route: 042
     Dates: start: 20080226, end: 20080226
  57. PREDNISONE [Concomitant]
  58. ARANESP [Concomitant]

REACTIONS (60)
  - MALAISE [None]
  - SPUTUM DISCOLOURED [None]
  - CHILLS [None]
  - PYREXIA [None]
  - UNRESPONSIVE TO STIMULI [None]
  - SPINAL COMPRESSION FRACTURE [None]
  - MUSCULAR WEAKNESS [None]
  - OXYGEN SATURATION DECREASED [None]
  - DRUG CLEARANCE DECREASED [None]
  - STAPHYLOCOCCUS TEST POSITIVE [None]
  - EMPYEMA [None]
  - SKIN DISCOLOURATION [None]
  - HEADACHE [None]
  - CHRONIC INFLAMMATORY DEMYELINATING POLYRADICULONEUROPATHY [None]
  - DRUG INEFFECTIVE [None]
  - EPISTAXIS [None]
  - OSTEOMYELITIS [None]
  - ENDOCARDITIS [None]
  - BONE MARROW OEDEMA [None]
  - PRODUCT CONTAMINATION [None]
  - HYPERTENSION [None]
  - SEPSIS [None]
  - MUSCULOSKELETAL PAIN [None]
  - PARAESTHESIA [None]
  - SPINAL COLUMN STENOSIS [None]
  - DRUG ADMINISTRATION ERROR [None]
  - ABDOMINAL PAIN [None]
  - PROSTATITIS [None]
  - DEPRESSED LEVEL OF CONSCIOUSNESS [None]
  - ARRHYTHMIA [None]
  - BURNING SENSATION [None]
  - PAIN IN EXTREMITY [None]
  - INTERVERTEBRAL DISCITIS [None]
  - AORTIC DISORDER [None]
  - WEIGHT DECREASED [None]
  - THROMBOCYTOPENIA [None]
  - VOMITING [None]
  - ATRIAL FIBRILLATION [None]
  - PULMONARY EMBOLISM [None]
  - HAEMATOSPERMIA [None]
  - PERITONEAL EFFLUENT ABNORMAL [None]
  - MITRAL VALVE CALCIFICATION [None]
  - PRODUCTIVE COUGH [None]
  - BLOOD PHOSPHORUS INCREASED [None]
  - SYNCOPE [None]
  - ASTHENIA [None]
  - URAEMIC ENCEPHALOPATHY [None]
  - RESTLESSNESS [None]
  - PLEURAL EFFUSION [None]
  - NEPHROLITHIASIS [None]
  - PNEUMONIA [None]
  - DEVICE RELATED INFECTION [None]
  - INFECTIOUS PERITONITIS [None]
  - THIRST [None]
  - PERICARDIAL EFFUSION [None]
  - BLOOD PRESSURE DECREASED [None]
  - BACTERAEMIA [None]
  - GAIT DISTURBANCE [None]
  - PRODUCT QUALITY ISSUE [None]
  - STENOTROPHOMONAS TEST POSITIVE [None]
